FAERS Safety Report 4807257-3 (Version None)
Quarter: 2005Q4

REPORT INFORMATION
  Report Type: 
  Country: None (occurrence: None)
  Receive Date: 20051020
  Receipt Date: 20051020
  Transmission Date: 20060501
  Serious: Yes (Life-Threatening, Hospitalization)
  Sender: FDA-Public Use
  Company Number: None

PATIENT
  Age: 40 Year
  Sex: Male
  Weight: 104.3273 kg

DRUGS (2)
  1. IBUPROFEN [Suspect]
     Indication: BACK INJURY
     Dosage: 600 TO 800 MG 1 OR 2 TIMES DAILY  PO
     Route: 048
     Dates: start: 19880101, end: 20040101
  2. IBUPROFEN [Suspect]
     Indication: INJURY
     Dosage: 600 TO 800 MG 1 OR 2 TIMES DAILY  PO
     Route: 048
     Dates: start: 19880101, end: 20040101

REACTIONS (2)
  - CORONARY ARTERY OCCLUSION [None]
  - MYOCARDIAL INFARCTION [None]
